FAERS Safety Report 4736269-3 (Version None)
Quarter: 2005Q3

REPORT INFORMATION
  Report Type: 
  Country: None (occurrence: None)
  Receive Date: 20050802
  Receipt Date: 20050718
  Transmission Date: 20060218
  Serious: Yes (Hospitalization)
  Sender: FDA-Public Use
  Company Number: 2005103260

PATIENT
  Age: 39 Year
  Sex: Female

DRUGS (5)
  1. FLUCONAZOLE [Suspect]
     Indication: GASTROINTESTINAL CANDIDIASIS
     Dosage: ORAL
     Route: 048
     Dates: start: 20050407
  2. NOROXIN [Suspect]
     Indication: GASTROINTESTINAL CANDIDIASIS
     Dosage: ORAL
     Route: 048
     Dates: start: 20050407
  3. NEXIUM [Suspect]
     Indication: GASTRIC ULCER HAEMORRHAGE
     Dosage: ORAL
     Route: 048
     Dates: start: 20050407
  4. SACCHAROMYCES BOULARDII (SACCHAROMYCES BOULARDII) [Concomitant]
  5. CIBLOR (AMOXICILLIN TRIHYDRATE, CLAVULANATE POTASSIUM) [Concomitant]

REACTIONS (5)
  - ABDOMINAL PAIN [None]
  - ASTHENIA [None]
  - BODY TEMPERATURE INCREASED [None]
  - HEADACHE [None]
  - VERTIGO [None]
